FAERS Safety Report 12169117 (Version 2)
Quarter: 2016Q1

REPORT INFORMATION
  Report Type: Report from Study
  Country: TR (occurrence: TR)
  Receive Date: 20160310
  Receipt Date: 20160311
  Transmission Date: 20160526
  Serious: Yes (Hospitalization, Other)
  Sender: FDA-Public Use
  Company Number: PHHY2016TR028894

PATIENT
  Sex: Male
  Weight: 60 kg

DRUGS (1)
  1. SOMATROPIN [Suspect]
     Active Substance: SOMATROPIN
     Indication: GROWTH HORMONE DEFICIENCY
     Dosage: 1.9 MG, QD
     Route: 058
     Dates: start: 20150910, end: 201512

REACTIONS (2)
  - Limb deformity [Unknown]
  - Procedural complication [Unknown]
